FAERS Safety Report 7225845-4 (Version None)
Quarter: 2011Q1

REPORT INFORMATION
  Report Type: 
  Country: None (occurrence: None)
  Receive Date: 20110107
  Receipt Date: 20110107
  Transmission Date: 20110831
  Serious: Yes (Other)
  Sender: FDA-Public Use
  Company Number: None

PATIENT
  Age: 76 Year
  Sex: Female

DRUGS (1)
  1. LYRICA [Suspect]
     Indication: NEURALGIA
     Dosage: 1 CAPSULE TWICE A DAY PO
     Route: 048
     Dates: start: 20100926, end: 20101214

REACTIONS (4)
  - WEIGHT INCREASED [None]
  - DRY MOUTH [None]
  - OEDEMA PERIPHERAL [None]
  - DRY EYE [None]
